FAERS Safety Report 25919960 (Version 1)
Quarter: 2025Q4

REPORT INFORMATION
  Report Type: Spontaneous
  Country: US (occurrence: US)
  Receive Date: 20251014
  Receipt Date: 20251014
  Transmission Date: 20260117
  Serious: No
  Sender: LUNDBECK
  Company Number: US-LUNDBECK-DKLU4019510

PATIENT
  Age: 50 Year
  Sex: Female

DRUGS (2)
  1. VYEPTI [Suspect]
     Active Substance: EPTINEZUMAB-JJMR
     Indication: Migraine
     Dosage: 200 MILLIGRAM
     Route: 041
     Dates: start: 202504
  2. VYEPTI [Suspect]
     Active Substance: EPTINEZUMAB-JJMR
     Dosage: 300 MILLIGRAM
     Route: 041

REACTIONS (3)
  - Drug ineffective [Not Recovered/Not Resolved]
  - Headache [Not Recovered/Not Resolved]
  - Off label use [Unknown]

NARRATIVE: CASE EVENT DATE: 20250401
